FAERS Safety Report 5445777-1 (Version None)
Quarter: 2007Q3

REPORT INFORMATION
  Report Type: 
  Country: None (occurrence: None)
  Receive Date: 20070904
  Receipt Date: 20070817
  Transmission Date: 20080115
  Serious: Yes (Hospitalization)
  Sender: FDA-Public Use
  Company Number: 2007RR-09389

PATIENT
  Age: 46 Year
  Sex: Male

DRUGS (4)
  1. FLUCONAZOLE [Suspect]
     Indication: CRYPTOCOCCOSIS
     Dosage: 600 MG, QD, INTRAVENOUS
     Route: 042
  2. VORICONAZOLE (VORICONAZOLE) [Concomitant]
  3. VALPROIC ACID [Concomitant]
  4. DIPHENYLHYDANTOINE (DIPHENYLHYDANTOINE) [Concomitant]

REACTIONS (5)
  - ARTERIOSCLEROSIS [None]
  - CARDIAC DISORDER [None]
  - DISEASE PROGRESSION [None]
  - PATHOGEN RESISTANCE [None]
  - RENAL FAILURE CHRONIC [None]
